FAERS Safety Report 6231907-0 (Version None)
Quarter: 2009Q2

REPORT INFORMATION
  Report Type: 
  Country: None (occurrence: None)
  Receive Date: 20090616
  Receipt Date: 20090608
  Transmission Date: 20091009
  Serious: Yes (Hospitalization)
  Sender: FDA-Public Use
  Company Number: US-ELI_LILLY_AND_COMPANY-US200906002067

PATIENT
  Sex: Male
  Weight: 121.32 kg

DRUGS (8)
  1. BYETTA [Suspect]
     Indication: TYPE 2 DIABETES MELLITUS
     Dosage: 5 UG, 2/D
     Route: 058
     Dates: start: 20070101, end: 20070101
  2. BYETTA [Suspect]
     Dosage: 10 UG, 2/D
     Route: 058
     Dates: start: 20070101, end: 20080101
  3. BYETTA [Suspect]
     Dosage: 5 UG, 2/D
     Route: 058
     Dates: start: 20090501, end: 20090601
  4. BYETTA [Suspect]
     Dosage: 10 UG, 2/D
     Route: 058
     Dates: start: 20090601
  5. JANUMET [Concomitant]
     Indication: TYPE 2 DIABETES MELLITUS
  6. GLIPIZIDE [Concomitant]
  7. METFORMIN HCL [Concomitant]
     Indication: TYPE 2 DIABETES MELLITUS
  8. OTHER CARDIAC PREPARATIONS [Concomitant]
     Indication: CARDIAC DISORDER

REACTIONS (8)
  - ATRIAL FIBRILLATION [None]
  - BLOOD GLUCOSE DECREASED [None]
  - DYSPEPSIA [None]
  - DYSPNOEA EXERTIONAL [None]
  - FEELING ABNORMAL [None]
  - LIMB DISCOMFORT [None]
  - MYOCARDIAL INFARCTION [None]
  - NAUSEA [None]
